FAERS Safety Report 9445744 (Version 4)
Quarter: 2013Q4

REPORT INFORMATION
  Report Type: Spontaneous
  Country: JP (occurrence: JP)
  Receive Date: 20130807
  Receipt Date: 20131105
  Transmission Date: 20140711
  Serious: Yes (Other)
  Sender: FDA-Public Use
  Company Number: JP-ASTRAZENECA-2013SE59722

PATIENT
  Age: 31258 Day
  Sex: Male
  Weight: 70 kg

DRUGS (7)
  1. CRESTOR [Suspect]
     Indication: HYPERCHOLESTEROLAEMIA
     Route: 048
     Dates: start: 20110707, end: 20130726
  2. MUNOBAL [Concomitant]
     Indication: HYPERTENSION
     Route: 048
     Dates: start: 19970606
  3. PRODEC [Concomitant]
     Indication: HYPERURICAEMIA
     Route: 048
     Dates: start: 20120912
  4. CHOREITO [Concomitant]
     Indication: NEPHROLITHIASIS
     Route: 048
     Dates: start: 20120216
  5. MAINVATE [Concomitant]
     Indication: PRURITUS
     Dosage: DOSE UNKNOWN
     Route: 062
     Dates: start: 20050922
  6. MOHRUS TAPE [Concomitant]
     Indication: OSTEOARTHRITIS
     Dosage: DOSE UNKNOWN
     Route: 062
     Dates: start: 20010925
  7. SANCOBA [Concomitant]
     Indication: ASTHENOPIA
     Route: 047
     Dates: start: 20020219

REACTIONS (10)
  - Ureteric cancer [Unknown]
  - Rhabdomyolysis [Recovering/Resolving]
  - Blood creatine phosphokinase increased [Unknown]
  - Dehydration [Unknown]
  - Haematuria [Unknown]
  - Diarrhoea [Unknown]
  - Benign prostatic hyperplasia [Unknown]
  - Urethral stenosis [Unknown]
  - Muscle twitching [Unknown]
  - Hypoaesthesia [Recovering/Resolving]
